FAERS Safety Report 6209463-2 (Version None)
Quarter: 2009Q2

REPORT INFORMATION
  Report Type: 
  Country: None (occurrence: None)
  Receive Date: 20090601
  Receipt Date: 20081201
  Transmission Date: 20091009
  Serious: No
  Sender: FDA-Public Use
  Company Number: A0758552A

PATIENT
  Sex: Female

DRUGS (2)
  1. AUGMENTIN '125' [Suspect]
     Indication: URINARY TRACT INFECTION
     Dosage: 500MG THREE TIMES PER DAY
     Route: 048
  2. UNKNOWN [Concomitant]

REACTIONS (4)
  - BACK PAIN [None]
  - CHROMATURIA [None]
  - DRUG INEFFECTIVE [None]
  - KIDNEY INFECTION [None]
